FAERS Safety Report 5092688-X (Version None)
Quarter: 2006Q3

REPORT INFORMATION
  Report Type: 
  Country: None (occurrence: None)
  Receive Date: 20060830
  Receipt Date: 20060821
  Transmission Date: 20061208
  Serious: Yes (Hospitalization)
  Sender: FDA-Public Use
  Company Number: US-BAYER-200615185BWH

PATIENT
  Age: 78 Year
  Sex: Male
  Weight: 91 kg

DRUGS (16)
  1. SORAFENIB [Suspect]
     Indication: HEPATIC NEOPLASM MALIGNANT
     Dosage: TOTAL DAILY DOSE: 400 MG  UNIT DOSE: 200 MG
     Route: 048
     Dates: start: 20060804
  2. SORAFENIB [Suspect]
     Dosage: TOTAL DAILY DOSE: 400 MG  UNIT DOSE: 200 MG
     Route: 048
     Dates: start: 20060714, end: 20060724
  3. DOXORUBICIN HCL [Suspect]
     Indication: HEPATIC NEOPLASM MALIGNANT
     Route: 042
     Dates: start: 20060804
  4. DOXORUBICIN HCL [Suspect]
     Route: 042
     Dates: start: 20060714
  5. COMPAZINE [Concomitant]
     Indication: NAUSEA
     Dates: start: 20060712, end: 20060804
  6. METOPROLOL TARTRATE [Concomitant]
     Indication: HYPERTENSION
     Dates: start: 20060712
  7. METOPROLOL TARTRATE [Concomitant]
     Dates: start: 20060804
  8. AUGMENTIN [Concomitant]
     Dates: start: 20060712, end: 20060804
  9. COLACE [Concomitant]
     Indication: CONSTIPATION PROPHYLAXIS
     Dates: end: 20060804
  10. SENOKOT [Concomitant]
     Indication: CONSTIPATION
     Dates: end: 20060804
  11. MORPHINE SULFATE [Concomitant]
     Indication: PAIN
     Dates: end: 20060804
  12. DURAGESIC-100 [Concomitant]
     Indication: PAIN
     Dates: end: 20060804
  13. LIDOCAINE [Concomitant]
     Indication: PAIN
  14. FENTANYL [Concomitant]
     Indication: PAIN
     Dates: start: 20060804
  15. METOCLOPRAMIDE [Concomitant]
     Indication: GASTROOESOPHAGEAL REFLUX DISEASE
     Dates: start: 20060804
  16. LORAZEPAM [Concomitant]
     Dates: start: 20060804

REACTIONS (6)
  - ABDOMINAL PAIN [None]
  - HICCUPS [None]
  - MUCOSAL INFLAMMATION [None]
  - NAUSEA [None]
  - NEUTROPHIL COUNT DECREASED [None]
  - VOMITING [None]
